FAERS Safety Report 11131927 (Version 1)
Quarter: 2015Q2

REPORT INFORMATION
  Report Type: Spontaneous
  Country: US (occurrence: US)
  Receive Date: 20150522
  Receipt Date: 20150522
  Transmission Date: 20150821
  Serious: Yes (Hospitalization)
  Sender: FDA-Public Use
  Company Number: US-GLAXOSMITHKLINE-US2015066585

PATIENT
  Age: 30 Year
  Sex: Female

DRUGS (1)
  1. ZOFRAN [Suspect]
     Active Substance: ONDANSETRON HYDROCHLORIDE
     Indication: NAUSEA
     Dosage: 2 OR 4 MG ORAL BID, 4 MG INTRAVENOUS WHILE HOSPITALIZED
     Dates: start: 201309, end: 20140311

REACTIONS (3)
  - Exposure during pregnancy [Unknown]
  - Urinary tract infection [Recovered/Resolved]
  - Premature baby [Unknown]

NARRATIVE: CASE EVENT DATE: 201309
